FAERS Safety Report 6039786-1 (Version None)
Quarter: 2009Q1

REPORT INFORMATION
  Report Type: 
  Country: None (occurrence: None)
  Receive Date: 20090116
  Receipt Date: 20090115
  Transmission Date: 20090719
  Serious: Yes (Death)
  Sender: FDA-Public Use
  Company Number: US-BAYER-200833142NA

PATIENT
  Sex: Female
  Weight: 113 kg

DRUGS (1)
  1. YAZ [Suspect]
     Indication: VAGINAL HAEMORRHAGE
     Dosage: UNIT DOSE: 1 DF
     Route: 048

REACTIONS (2)
  - INTENTIONAL OVERDOSE [None]
  - THROMBOSIS [None]
